FAERS Safety Report 8446959-7 (Version None)
Quarter: 2012Q2

REPORT INFORMATION
  Report Type: 
  Country: None (occurrence: None)
  Receive Date: 20120613
  Receipt Date: 20120613
  Transmission Date: 20120825
  Serious: No
  Sender: FDA-Public Use
  Company Number: None

PATIENT
  Sex: Female

DRUGS (1)
  1. ISOVUE-300 [Suspect]
     Indication: IMAGING PROCEDURE
     Dates: start: 20120608, end: 20120608

REACTIONS (2)
  - MALAISE [None]
  - CHILLS [None]
